FAERS Safety Report 7600750-X (Version None)
Quarter: 2011Q3

REPORT INFORMATION
  Report Type: 
  Country: None (occurrence: None)
  Receive Date: 20110711
  Receipt Date: 20110627
  Transmission Date: 20111222
  Serious: Yes (Death, Other)
  Sender: FDA-Public Use
  Company Number: CN-ROCHE-788165

PATIENT
  Sex: Female

DRUGS (2)
  1. CAPECITABINE [Suspect]
     Dosage: ON DAYS 1-14 EVERY 21 DAYS.
     Route: 065
  2. LAPATINIB [Suspect]
     Route: 065

REACTIONS (4)
  - THROMBOCYTOPENIA [None]
  - MULTI-ORGAN FAILURE [None]
  - LEUKOPENIA [None]
  - NEUTROPENIA [None]
